FAERS Safety Report 24876509 (Version 1)
Quarter: 2025Q1

REPORT INFORMATION
  Report Type: Spontaneous
  Country: NO (occurrence: NO)
  Receive Date: 20250123
  Receipt Date: 20250123
  Transmission Date: 20250409
  Serious: Yes (Life-Threatening)
  Sender: ROCHE
  Company Number: None

PATIENT
  Age: 59 Year
  Sex: Male

DRUGS (15)
  1. TAMIFLU [Suspect]
     Active Substance: OSELTAMIVIR PHOSPHATE
     Indication: Influenza
     Route: 048
     Dates: start: 20241227, end: 20241229
  2. POTASSIUM CHLORIDE [Concomitant]
     Active Substance: POTASSIUM CHLORIDE
  3. OLODATEROL HYDROCHLORIDE\TIOTROPIUM BROMIDE MONOHYDRATE [Concomitant]
     Active Substance: OLODATEROL HYDROCHLORIDE\TIOTROPIUM BROMIDE MONOHYDRATE
  4. BUMETANIDE [Concomitant]
     Active Substance: BUMETANIDE
  5. MIRTAZAPINE [Concomitant]
     Active Substance: MIRTAZAPINE
  6. Melatonin Orifarm [Concomitant]
  7. IMOVANE [Concomitant]
     Active Substance: ZOPICLONE
  8. BISOPROLOL ZENTIVA [Concomitant]
  9. IMDUR [Concomitant]
     Active Substance: ISOSORBIDE MONONITRATE
  10. XARELTO [Concomitant]
     Active Substance: RIVAROXABAN
  11. Buprenorphine Sandoz [Concomitant]
  12. METOCLOPRAMIDE HYDROCHLORIDE [Concomitant]
     Active Substance: METOCLOPRAMIDE HYDROCHLORIDE
  13. ACETAMINOPHEN [Concomitant]
     Active Substance: ACETAMINOPHEN
  14. Nitroglycerin Orifarm [Concomitant]
  15. PENICILLIN G [Concomitant]
     Active Substance: PENICILLIN G

REACTIONS (1)
  - Acute hepatic failure [Recovering/Resolving]

NARRATIVE: CASE EVENT DATE: 20241229
